FAERS Safety Report 21701161 (Version 1)
Quarter: 2022Q4

REPORT INFORMATION
  Report Type: Spontaneous
  Country: GB (occurrence: GB)
  Receive Date: 20221208
  Receipt Date: 20221208
  Transmission Date: 20230112
  Serious: Yes (Other)
  Sender: FDA-Public Use
  Company Number: GB-BAYER-2022A167310

PATIENT

DRUGS (2)
  1. ADEMPAS [Suspect]
     Active Substance: RIOCIGUAT
  2. PEMBROLIZUMAB [Concomitant]
     Active Substance: PEMBROLIZUMAB
     Indication: Pulmonary arterial hypertension

REACTIONS (6)
  - Hepatic cirrhosis [None]
  - Diabetes mellitus [None]
  - Drug ineffective [None]
  - Obesity [None]
  - Atrial flutter [None]
  - Depression [None]
